FAERS Safety Report 7579275-6 (Version None)
Quarter: 2011Q2

REPORT INFORMATION
  Report Type: 
  Country: None (occurrence: None)
  Receive Date: 20110628
  Receipt Date: 20110624
  Transmission Date: 20111010
  Serious: Yes (Other)
  Sender: FDA-Public Use
  Company Number: US-ABBOTT-11P-163-0734969-00

PATIENT
  Sex: Female
  Weight: 68.1 kg

DRUGS (8)
  1. SYNTHROID [Concomitant]
     Indication: AUTOIMMUNE THYROIDITIS
     Route: 048
     Dates: start: 20110515, end: 20110620
  2. COFFEE [Concomitant]
     Indication: PRODUCT USED FOR UNKNOWN INDICATION
     Dosage: 1 SERVING A DAY
     Route: 048
     Dates: start: 20110515, end: 20110620
  3. HUMIRA [Suspect]
     Route: 050
     Dates: start: 20110607, end: 20110607
  4. LIQUOR [Concomitant]
     Indication: ALCOHOL USE
     Dosage: VODKA, OTHER LIQUOR - 2 SERVINGS PER DAY
     Dates: start: 20110610, end: 20110610
  5. BEER [Concomitant]
     Indication: PRODUCT USED FOR UNKNOWN INDICATION
     Dosage: 1 SERVING A DAY
     Route: 048
     Dates: start: 20110609, end: 20110609
  6. HUMIRA [Suspect]
     Indication: ANKYLOSING SPONDYLITIS
     Route: 050
     Dates: start: 20110522, end: 20110522
  7. PRENATAL VITAMINS [Concomitant]
     Indication: PRODUCT USED FOR UNKNOWN INDICATION
     Dosage: 1 PILL
     Route: 048
     Dates: start: 20110515, end: 20110620
  8. WINE [Concomitant]
     Indication: PRODUCT USED FOR UNKNOWN INDICATION
     Dosage: 2 SERVINGS A DAY
     Route: 048
     Dates: start: 20110610, end: 20110610

REACTIONS (1)
  - ABORTION SPONTANEOUS [None]
